FAERS Safety Report 16842438 (Version 1)
Quarter: 2019Q3

REPORT INFORMATION
  Report Type: Spontaneous
  Country: AU (occurrence: AU)
  Receive Date: 20190924
  Receipt Date: 20190924
  Transmission Date: 20191005
  Serious: Yes (Hospitalization, Other)
  Sender: FDA-Public Use
  Company Number: AU-AMGEN-AUSSP2019097671

PATIENT
  Age: 81 Year
  Sex: Female
  Weight: 58 kg

DRUGS (7)
  1. LASIX [Concomitant]
     Active Substance: FUROSEMIDE
     Dosage: 40 MILLIGRAM, QD AS DIRECTED
     Route: 048
  2. LUMIGAN [Concomitant]
     Active Substance: BIMATOPROST
     Dosage: 0.3 PERCENT, 1 AT NIGHT RIGHT SIDE
     Route: 047
  3. OSTELIN [GLUCOSAMINE SULFATE] [Concomitant]
     Dosage: UNK UNK, BID
     Route: 048
  4. ALPHAGAN P [Concomitant]
     Active Substance: BRIMONIDINE TARTRATE
     Dosage: 0.15 PERCENT, BID
  5. PROLIA [Suspect]
     Active Substance: DENOSUMAB
     Indication: OSTEOPOROSIS POSTMENOPAUSAL
     Dosage: 60 MILLIGRAM/1ML, Q6MO
     Route: 058
     Dates: start: 20170302, end: 20190301
  6. VITAMIN D [COLECALCIFEROL] [Concomitant]
     Active Substance: CHOLECALCIFEROL
     Dosage: UNK UNK, QD
  7. COVERSYL [PERINDOPRIL ARGININE] [Concomitant]
     Active Substance: PERINDOPRIL ARGININE
     Dosage: 2.5 MILLIGRAM, QD, DAILY AS DIRECTED
     Route: 048

REACTIONS (2)
  - Fall [Unknown]
  - Pathological fracture [Recovered/Resolved]

NARRATIVE: CASE EVENT DATE: 201902
